FAERS Safety Report 6913654-2 (Version None)
Quarter: 2010Q3

REPORT INFORMATION
  Report Type: 
  Country: None (occurrence: None)
  Receive Date: 20100803
  Receipt Date: 20100726
  Transmission Date: 20110219
  Serious: Yes (Death)
  Sender: FDA-Public Use
  Company Number: 2010JP004354

PATIENT
  Sex: Female

DRUGS (1)
  1. MICAFUNGIN (MICAFUNGIN) INJECTION [Suspect]
     Dosage: IV NOS
     Route: 042
     Dates: start: 20100609, end: 20100609

REACTIONS (1)
  - DEATH [None]
